FAERS Safety Report 22389937 (Version 3)
Quarter: 2023Q2

REPORT INFORMATION
  Report Type: Spontaneous
  Country: US (occurrence: US)
  Receive Date: 20230531
  Receipt Date: 20230602
  Transmission Date: 20230722
  Serious: No
  Sender: FDA-Public Use
  Company Number: US-Dermavant-000632

PATIENT

DRUGS (1)
  1. TAPINAROF [Suspect]
     Active Substance: TAPINAROF
     Dosage: AREA AFFECTED: SCROTUM
     Route: 061

REACTIONS (3)
  - Skin burning sensation [Unknown]
  - Pruritus [Unknown]
  - Skin discolouration [Unknown]
